FAERS Safety Report 6807498-X (Version None)
Quarter: 2010Q2

REPORT INFORMATION
  Report Type: 
  Country: None (occurrence: None)
  Receive Date: 20100629
  Receipt Date: 20081006
  Transmission Date: 20101027
  Serious: Yes (Other)
  Sender: FDA-Public Use
  Company Number: US-PFIZER INC-2008083801

PATIENT
  Age: 69 Year
  Sex: Male

DRUGS (1)
  1. XANAX [Suspect]

REACTIONS (1)
  - DEPENDENCE [None]
